FAERS Safety Report 6871525-4 (Version None)
Quarter: 2010Q3

REPORT INFORMATION
  Report Type: 
  Country: None (occurrence: None)
  Receive Date: 20100723
  Receipt Date: 20100712
  Transmission Date: 20110219
  Serious: Yes (Other)
  Sender: FDA-Public Use
  Company Number: PHHY2010DE35181

PATIENT
  Age: 61 Year
  Sex: Female
  Weight: 57 kg

DRUGS (1)
  1. AFINITOR [Suspect]
     Indication: RENAL CELL CARCINOMA
     Dosage: 10 MG/DAY
     Route: 048
     Dates: start: 20100216

REACTIONS (4)
  - ASCITES [None]
  - CARDIAC FAILURE [None]
  - EJECTION FRACTION DECREASED [None]
  - OEDEMA PERIPHERAL [None]
